FAERS Safety Report 5355780-8 (Version None)
Quarter: 2007Q2

REPORT INFORMATION
  Report Type: 
  Country: None (occurrence: None)
  Receive Date: 20070613
  Receipt Date: 20070608
  Transmission Date: 20071010
  Serious: No
  Sender: FDA-Public Use
  Company Number: US-MERCK-0704USA06568

PATIENT
  Age: 52 Year
  Sex: Female

DRUGS (6)
  1. JANUVIA [Suspect]
     Indication: DIABETES MELLITUS NON-INSULIN-DEPENDENT
     Route: 048
     Dates: start: 20070410
  2. LIPITOR [Concomitant]
     Route: 065
  3. AVANDAMET [Concomitant]
     Route: 065
  4. LOTENSIN HCT [Concomitant]
     Route: 065
  5. DIOVAN [Concomitant]
     Route: 065
  6. LEXAPRO [Concomitant]
     Route: 065

REACTIONS (4)
  - DECREASED APPETITE [None]
  - MALAISE [None]
  - SYNCOPE [None]
  - TREMOR [None]
